FAERS Safety Report 6950147-0 (Version None)
Quarter: 2010Q3

REPORT INFORMATION
  Report Type: 
  Country: None (occurrence: None)
  Receive Date: 20100828
  Receipt Date: 20100208
  Transmission Date: 20110219
  Serious: No
  Sender: FDA-Public Use
  Company Number: US-ABBOTT-10P-163-0620556-00

PATIENT
  Sex: Female
  Weight: 123.94 kg

DRUGS (15)
  1. NIASPAN [Suspect]
     Indication: BLOOD CHOLESTEROL INCREASED
     Route: 048
     Dates: start: 20091229
  2. ASPIRIN [Concomitant]
     Indication: FLUSHING
     Route: 048
     Dates: start: 20091229, end: 20100115
  3. ASPIRIN [Concomitant]
     Indication: PROPHYLAXIS
     Route: 048
     Dates: start: 20100115
  4. WELCHOL [Concomitant]
     Indication: BLOOD CHOLESTEROL INCREASED
     Route: 048
  5. COZAAR [Concomitant]
     Indication: HYPERTENSION
     Route: 048
  6. COREG [Concomitant]
     Indication: HYPERTENSION
     Route: 048
  7. SPIRONOLACTONE [Concomitant]
     Indication: DIURETIC THERAPY
     Route: 048
  8. EFFEXOR [Concomitant]
     Indication: MENOPAUSE
     Route: 048
  9. TRILIPIX [Concomitant]
     Indication: BLOOD CHOLESTEROL INCREASED
     Route: 048
     Dates: start: 20091001
  10. GLIPIZIDE [Concomitant]
     Indication: DIABETES MELLITUS
     Dosage: BID
     Route: 048
  11. METFORMIN [Concomitant]
     Indication: DIABETES MELLITUS
     Route: 048
  12. ACTOS [Concomitant]
     Indication: DIABETES MELLITUS
     Route: 048
  13. JANUVIA [Concomitant]
     Indication: DIABETES MELLITUS
     Route: 048
  14. CALCIUM/MAG/ZINC/VIT D SUPPLEMENT [Concomitant]
     Indication: MEDICAL DIET
     Route: 048
  15. CALCIUM/MAG/ZINC/VIT D SUPPLEMENT [Concomitant]
     Indication: VITAMIN SUPPLEMENTATION

REACTIONS (8)
  - ANXIETY [None]
  - DYSPNOEA [None]
  - FLUSHING [None]
  - HYPERHIDROSIS [None]
  - INITIAL INSOMNIA [None]
  - PARAESTHESIA [None]
  - PRURITUS [None]
  - SWELLING FACE [None]
